FAERS Safety Report 6515979-1 (Version None)
Quarter: 2009Q4

REPORT INFORMATION
  Report Type: 
  Country: None (occurrence: None)
  Receive Date: 20091223
  Receipt Date: 20091216
  Transmission Date: 20100525
  Serious: Yes (Hospitalization)
  Sender: FDA-Public Use
  Company Number: BE-ELI_LILLY_AND_COMPANY-BE200911002257

PATIENT
  Sex: Female
  Weight: 52 kg

DRUGS (11)
  1. PEMETREXED [Suspect]
     Indication: NON-SMALL CELL LUNG CANCER STAGE III
     Dosage: 500 MG/M2, ONCE EVERY 21 DAYS
     Route: 042
     Dates: start: 20091012
  2. CISPLATIN [Suspect]
     Indication: NON-SMALL CELL LUNG CANCER STAGE III
     Dosage: 75 MG/M2, ONCE EVERY 21 DAYS
     Route: 042
     Dates: start: 20091012
  3. RADIATION [Suspect]
     Indication: NON-SMALL CELL LUNG CANCER STAGE III
     Dosage: 29 GY PER FRACTION 5 DAYS PER WEEK IN ONCE DAILY FRACTIONS
     Dates: start: 20091012
  4. FOLIC ACID [Concomitant]
     Indication: PROPHYLAXIS
     Dates: start: 20091005
  5. VITAMIN B-12 [Concomitant]
     Indication: PROPHYLAXIS
     Dates: start: 20091005
  6. DEXAMETHASONE TAB [Concomitant]
     Indication: PROPHYLAXIS
     Dates: start: 20091101, end: 20091103
  7. OMEPRAZOLE [Concomitant]
     Indication: PROPHYLAXIS
     Dates: start: 20091005
  8. SYNGEL [Concomitant]
     Indication: PROPHYLAXIS
     Dates: start: 20091102
  9. LITICAN [Concomitant]
     Indication: NAUSEA
     Dates: start: 20091021
  10. TRADONAL [Concomitant]
     Indication: PAIN
     Dates: start: 20091021
  11. TETRAZEPAM [Concomitant]
     Indication: ANXIETY
     Dates: start: 20091026

REACTIONS (2)
  - DYSPHAGIA [None]
  - GENERAL PHYSICAL HEALTH DETERIORATION [None]
